FAERS Safety Report 16903593 (Version 2)
Quarter: 2019Q4

REPORT INFORMATION
  Report Type: Spontaneous
  Country: ES (occurrence: ES)
  Receive Date: 20191010
  Receipt Date: 20191011
  Transmission Date: 20200122
  Serious: Yes (Hospitalization)
  Sender: FDA-Public Use
  Company Number: ES-PFIZER INC-2019435334

PATIENT
  Age: 69 Year
  Sex: Female

DRUGS (4)
  1. DICLOFENAC EPOLAMINE [Suspect]
     Active Substance: DICLOFENAC EPOLAMINE
     Indication: ARTHRALGIA
     Dosage: 1 DF, DAILY (1 DF 1 DAY)
     Route: 061
     Dates: start: 20190501, end: 20190709
  2. OPSUMIT [Suspect]
     Active Substance: MACITENTAN
     Indication: SCLERODERMA
     Dosage: 10 MG, DAILY (10 MG 1 DAY)
     Route: 048
     Dates: start: 20190509, end: 20190812
  3. ZANTAC [Concomitant]
     Active Substance: RANITIDINE HYDROCHLORIDE
     Indication: AUTOIMMUNE HEPATITIS
     Dosage: 50 MG, DAILY
     Route: 048
     Dates: start: 20181211
  4. PREDNISONA [Concomitant]
     Active Substance: PREDNISONE
     Indication: AUTOIMMUNE HEPATITIS
     Dosage: 7.5 MG, DAILY
     Route: 048
     Dates: start: 20190329, end: 20190710

REACTIONS (3)
  - Cardiac failure [Recovered/Resolved]
  - Anaemia [Recovering/Resolving]
  - Acute kidney injury [Recovering/Resolving]

NARRATIVE: CASE EVENT DATE: 20190710
